FAERS Safety Report 17285907 (Version 1)
Quarter: 2020Q1

REPORT INFORMATION
  Report Type: Spontaneous
  Country: US (occurrence: US)
  Receive Date: 20200118
  Receipt Date: 20200118
  Transmission Date: 20200409
  Serious: Yes (Hospitalization, Other)
  Sender: FDA-Public Use
  Company Number: US-DRREDDYS-USA/USA/20/0118718

PATIENT
  Age: 72 Year
  Sex: Female

DRUGS (3)
  1. IMATINIB MESYLATE TABLETS [Suspect]
     Active Substance: IMATINIB MESYLATE
  2. IMATINIB MESYLATE TABLETS [Suspect]
     Active Substance: IMATINIB MESYLATE
     Indication: GASTROINTESTINAL STROMAL TUMOUR
  3. YTTRIUM (90 Y) [Suspect]
     Active Substance: YTTRIUM CHLORIDE Y-90
     Indication: RADIOEMBOLISATION
     Route: 065

REACTIONS (3)
  - Metastases to liver [Recovering/Resolving]
  - Tumour necrosis [Recovering/Resolving]
  - Pneumonitis [Recovering/Resolving]
